FAERS Safety Report 6697037-9 (Version None)
Quarter: 2010Q2

REPORT INFORMATION
  Report Type: 
  Country: None (occurrence: None)
  Receive Date: 20100426
  Receipt Date: 20100423
  Transmission Date: 20101027
  Serious: Yes (Hospitalization)
  Sender: FDA-Public Use
  Company Number: PHHO2009DE06584

PATIENT
  Sex: Male

DRUGS (2)
  1. AFINITOR [Suspect]
     Indication: METASTATIC RENAL CELL CARCINOMA
     Dosage: 10 MG DAILY
     Route: 048
     Dates: start: 20090506, end: 20090520
  2. AFINITOR [Suspect]
     Dosage: UNK
     Route: 048
     Dates: start: 20090611, end: 20090806

REACTIONS (2)
  - HYPOPHAGIA [None]
  - STOMATITIS [None]
